FAERS Safety Report 15271629 (Version 2)
Quarter: 2018Q3

REPORT INFORMATION
  Report Type: Report from Study
  Country: US (occurrence: US)
  Receive Date: 20180813
  Receipt Date: 20180821
  Transmission Date: 20181010
  Serious: Yes (Hospitalization)
  Sender: FDA-Public Use
  Company Number: PHHO2018US009179

PATIENT
  Age: 63 Year
  Sex: Female
  Weight: 63 kg

DRUGS (32)
  1. ONDANSETRON [Concomitant]
     Active Substance: ONDANSETRON
     Indication: IRRITABLE BOWEL SYNDROME
     Dosage: 4 MG, PRN
     Route: 048
     Dates: start: 2013
  2. ONDANSETRON [Concomitant]
     Active Substance: ONDANSETRON
     Indication: NAUSEA
  3. IBUPROFEN. [Concomitant]
     Active Substance: IBUPROFEN
     Indication: ARTHRALGIA
  4. KISQALI [Suspect]
     Active Substance: RIBOCICLIB
     Indication: BREAST CANCER
     Dosage: 200 MG, QD
     Route: 048
     Dates: start: 20171031, end: 20171031
  5. OXYCODONE [Concomitant]
     Active Substance: OXYCODONE
     Indication: PAIN
     Dosage: 5 MG, PRN
     Route: 048
     Dates: start: 20161207
  6. MELOXICAM. [Concomitant]
     Active Substance: MELOXICAM
     Indication: RENAL PAIN
  7. PREGABALIN. [Concomitant]
     Active Substance: PREGABALIN
     Indication: RENAL PAIN
  8. ESTRADIOL. [Concomitant]
     Active Substance: ESTRADIOL
     Indication: ATROPHIC VULVOVAGINITIS
     Dosage: 10 UG, QD
     Route: 050
     Dates: start: 20141218
  9. MELOXICAM. [Concomitant]
     Active Substance: MELOXICAM
     Indication: NECK PAIN
     Dosage: 7.5 MG, QD
     Route: 048
     Dates: start: 20161026
  10. MELOXICAM. [Concomitant]
     Active Substance: MELOXICAM
     Indication: BACK PAIN
  11. ELUXADOLINE [Concomitant]
     Active Substance: ELUXADOLINE
     Indication: IRRITABLE BOWEL SYNDROME
     Dosage: 1 TAB BID
     Route: 048
     Dates: start: 20161207
  12. LETROZOLE. [Suspect]
     Active Substance: LETROZOLE
     Indication: BREAST CANCER
     Dosage: 2.5 MG, QD
     Route: 048
     Dates: start: 20171031, end: 20180721
  13. ESZOPICLONE. [Concomitant]
     Active Substance: ESZOPICLONE
     Indication: HOT FLUSH
     Dosage: 3 MG, QD
     Route: 048
     Dates: start: 20171025
  14. LOPERAMIDE HYDROCHLORIDE. [Concomitant]
     Active Substance: LOPERAMIDE HYDROCHLORIDE
     Indication: DIARRHOEA
     Dosage: 1 TAB PRN
     Route: 048
     Dates: start: 20130910
  15. ONDANSETRON [Concomitant]
     Active Substance: ONDANSETRON
     Indication: DIARRHOEA
  16. IBUPROFEN. [Concomitant]
     Active Substance: IBUPROFEN
     Indication: MUSCULOSKELETAL PAIN
     Dosage: 800 MG, PRN
     Route: 048
     Dates: start: 20171025
  17. OXYCODONE [Concomitant]
     Active Substance: OXYCODONE
     Indication: RENAL PAIN
  18. FERROUS FUMARATE [Concomitant]
     Active Substance: FERROUS FUMARATE
     Indication: NUTRITIONAL SUPPLEMENTATION
     Dosage: 1 TAB QD
     Route: 048
     Dates: start: 20130911
  19. TRAMADOL HCL [Concomitant]
     Active Substance: TRAMADOL HYDROCHLORIDE
     Indication: BACK PAIN
     Dosage: 1 TAB, QD
     Route: 048
     Dates: start: 20160726
  20. TRAMADOL HCL [Concomitant]
     Active Substance: TRAMADOL HYDROCHLORIDE
     Indication: NECK PAIN
  21. KISQALI [Suspect]
     Active Substance: RIBOCICLIB
     Dosage: 600 MG, QD
     Route: 048
     Dates: start: 20171101, end: 20180721
  22. LETROZOLE. [Suspect]
     Active Substance: LETROZOLE
     Dosage: 2.5 MG, QD
     Route: 048
     Dates: start: 20180723
  23. ROSUVASTATIN. [Concomitant]
     Active Substance: ROSUVASTATIN
     Indication: HYPERCHOLESTEROLAEMIA
     Dosage: 5 MG, UNK
     Dates: start: 20171207
  24. PREDNISONE. [Concomitant]
     Active Substance: PREDNISONE
     Indication: BONE PAIN
     Dosage: 40 MG, QD
     Route: 048
     Dates: start: 20180410
  25. KISQALI [Suspect]
     Active Substance: RIBOCICLIB
     Dosage: 600 MG, QD
     Route: 048
     Dates: start: 20180806
  26. FEXOFENADINE [Concomitant]
     Active Substance: FEXOFENADINE\FEXOFENADINE HYDROCHLORIDE
     Indication: SEASONAL ALLERGY
     Dosage: 180 MG, QD
     Route: 048
     Dates: start: 20130911
  27. PREGABALIN. [Concomitant]
     Active Substance: PREGABALIN
     Indication: BACK PAIN
  28. IBUPROFEN. [Concomitant]
     Active Substance: IBUPROFEN
     Indication: ARTHRALGIA
  29. IBUPROFEN. [Concomitant]
     Active Substance: IBUPROFEN
     Indication: RENAL PAIN
  30. PREGABALIN. [Concomitant]
     Active Substance: PREGABALIN
     Indication: NECK PAIN
     Dosage: 75 MG, BID
     Route: 048
     Dates: start: 20161026
  31. NORTRIPTYLINE [Concomitant]
     Active Substance: NORTRIPTYLINE
     Indication: IRRITABLE BOWEL SYNDROME
     Dosage: 1 TAB QD
     Route: 048
     Dates: start: 20150331
  32. TRAMADOL HCL [Concomitant]
     Active Substance: TRAMADOL HYDROCHLORIDE
     Indication: RENAL PAIN

REACTIONS (1)
  - Pyelonephritis [Recovering/Resolving]

NARRATIVE: CASE EVENT DATE: 20180720
